FAERS Safety Report 7985566-7 (Version None)
Quarter: 2011Q4

REPORT INFORMATION
  Report Type: 
  Country: None (occurrence: None)
  Receive Date: 20111216
  Receipt Date: 20111214
  Transmission Date: 20120403
  Serious: Yes (Death, Disabling)
  Sender: FDA-Public Use
  Company Number: US-BRISTOL-MYERS SQUIBB COMPANY-16280273

PATIENT
  Age: 16 Year
  Sex: Male

DRUGS (8)
  1. BORTEZOMIB [Suspect]
     Dates: start: 20110924
  2. MORPHINE [Concomitant]
  3. VINCRISTINE [Concomitant]
  4. TEMOZOLOMIDE [Concomitant]
  5. SPRYCEL [Suspect]
     Indication: MALIGNANT SOFT TISSUE NEOPLASM
     Route: 048
     Dates: start: 20110905, end: 20111019
  6. IRINOTECAN HCL [Concomitant]
  7. VINORELBINE [Suspect]
     Dates: start: 20110915
  8. ATIVAN [Concomitant]

REACTIONS (3)
  - MALIGNANT PLEURAL EFFUSION [None]
  - POLYNEUROPATHY [None]
  - NEOPLASM MALIGNANT [None]
